FAERS Safety Report 11298248 (Version 1)
Quarter: 2015Q3

REPORT INFORMATION
  Report Type: Spontaneous
  Country: US (occurrence: US)
  Receive Date: 20150722
  Receipt Date: 20150722
  Transmission Date: 20151125
  Serious: Yes (Other)
  Sender: FDA-Public Use
  Company Number: US-ELI_LILLY_AND_COMPANY-US201107003935

PATIENT
  Sex: Female
  Weight: 50.34 kg

DRUGS (11)
  1. LANOXIN [Concomitant]
     Active Substance: DIGOXIN
     Dosage: 0.125 MG, EACH EVENING
  2. EVISTA [Suspect]
     Active Substance: RALOXIFENE HYDROCHLORIDE
     Dosage: UNK, UNKNOWN
  3. CALCIUM PLUS D3 [Concomitant]
     Dosage: 600 MG, BID
  4. EVENING PRIMROSE OIL [Concomitant]
     Active Substance: EVENING PRIMROSE OIL
  5. ALTACE [Concomitant]
     Active Substance: RAMIPRIL
     Dosage: 2.5 MG, UNK
  6. RECLAST [Concomitant]
     Active Substance: ZOLEDRONIC ACID
     Dosage: UNK, OTHER
     Dates: start: 20110322
  7. LANOXIN [Concomitant]
     Active Substance: DIGOXIN
     Dosage: UNK, 3/W
  8. CRESTOR [Concomitant]
     Active Substance: ROSUVASTATIN CALCIUM
     Dosage: 10 MG, EACH EVENING
  9. TRIAMTERENE. [Concomitant]
     Active Substance: TRIAMTERENE
     Dosage: 25 MG, 3/W
  10. MULTIVITAMIN [Concomitant]
     Active Substance: VITAMINS
     Dosage: UNK, QD
  11. TYLENOL [Concomitant]
     Active Substance: ACETAMINOPHEN
     Dosage: UNK UNK, PRN

REACTIONS (1)
  - Deep vein thrombosis [Recovered/Resolved]
